FAERS Safety Report 14410043 (Version 4)
Quarter: 2018Q1

REPORT INFORMATION
  Report Type: Spontaneous
  Country: US (occurrence: US)
  Receive Date: 20180119
  Receipt Date: 20180329
  Transmission Date: 20180509
  Serious: No
  Sender: FDA-Public Use
  Company Number: US-PFIZER INC-2018021881

PATIENT
  Sex: Male

DRUGS (2)
  1. PANTOPRAZOLE [Interacting]
     Active Substance: PANTOPRAZOLE
     Dosage: UNK
  2. BOSULIF [Suspect]
     Active Substance: BOSUTINIB MONOHYDRATE
     Dosage: UNK

REACTIONS (1)
  - Drug interaction [Unknown]
